FAERS Safety Report 7825585-4 (Version None)
Quarter: 2011Q4

REPORT INFORMATION
  Report Type: 
  Country: None (occurrence: None)
  Receive Date: 20111019
  Receipt Date: 20110915
  Transmission Date: 20120403
  Serious: No
  Sender: FDA-Public Use
  Company Number: US-MYLANLABS-2011S1019380

PATIENT
  Age: 41 Year
  Sex: Male

DRUGS (3)
  1. DIVALPROEX SODIUM EXTENDED RELEASE [Suspect]
     Indication: PSYCHOTIC DISORDER
     Route: 048
     Dates: start: 20101101
  2. CLOZAPINE [Suspect]
     Indication: PSYCHOTIC DISORDER
     Route: 048
     Dates: start: 20110704
  3. DILANTIN [Concomitant]
     Route: 048

REACTIONS (1)
  - AMMONIA INCREASED [None]
